FAERS Safety Report 24072506 (Version 2)
Quarter: 2024Q3

REPORT INFORMATION
  Report Type: Spontaneous
  Country: GB (occurrence: GB)
  Receive Date: 20240710
  Receipt Date: 20240802
  Transmission Date: 20241017
  Serious: Yes (Other)
  Sender: MICRO LABS
  Company Number: GB-MHRA-WEBRADR-202407011543059420-YFVHP

PATIENT
  Age: 15 Year
  Sex: Female

DRUGS (1)
  1. LEVETIRACETAM [Suspect]
     Active Substance: LEVETIRACETAM
     Indication: Product used for unknown indication
     Dates: start: 20240629, end: 20240630

REACTIONS (2)
  - Hallucination [Recovering/Resolving]
  - Confusional state [Recovering/Resolving]
